FAERS Safety Report 8556561-4 (Version None)
Quarter: 2012Q3

REPORT INFORMATION
  Report Type: 
  Country: None (occurrence: None)
  Receive Date: 20120801
  Receipt Date: 20120731
  Transmission Date: 20120928
  Serious: Yes (Hospitalization)
  Sender: FDA-Public Use
  Company Number: GB-MILLENNIUM PHARMACEUTICALS, INC.-2012-02593

PATIENT

DRUGS (12)
  1. AMITRIPTLINE HYDROCHLORIDE TAB [Concomitant]
     Indication: HERPES ZOSTER
     Dosage: 10 MG, QD
     Route: 048
     Dates: start: 20080901, end: 20081010
  2. ACETAMINOPHEN [Concomitant]
     Indication: PAIN
     Dosage: 1 MG, UNK
     Route: 048
     Dates: start: 20080901
  3. VINCRISTINE [Suspect]
     Indication: MANTLE CELL LYMPHOMA
     Dosage: 2 MG, UNK
     Route: 042
     Dates: start: 20080530
  4. ACYCLOVIR [Concomitant]
     Dosage: 400 MG, BID
     Route: 048
     Dates: start: 20080912
  5. ENOXAPARIN SODIUM [Concomitant]
     Indication: PROPHYLAXIS
  6. DOXORUBICIN HYDROCHLORIDE [Suspect]
     Indication: MANTLE CELL LYMPHOMA
     Dosage: 105 MG, UNK
     Route: 042
     Dates: start: 20080530
  7. ORAMORPH SR [Concomitant]
     Indication: PAIN
     Dosage: UNK
     Route: 048
     Dates: start: 20080818, end: 20081010
  8. ACYCLOVIR [Concomitant]
     Indication: HERPES ZOSTER
     Dosage: 800 MG, UNK
     Route: 048
     Dates: start: 20080729, end: 20080912
  9. GABAPENTIN [Concomitant]
     Indication: HERPES ZOSTER
     Dosage: 300 MG, QD
     Route: 048
     Dates: start: 20080818, end: 20081010
  10. VELCADE [Suspect]
     Indication: MANTLE CELL LYMPHOMA
     Dosage: 3.3 MG, UNK
     Route: 042
     Dates: start: 20080530, end: 20080903
  11. CYCLOPHOSPHAMIDE [Suspect]
     Indication: MANTLE CELL LYMPHOMA
     Dosage: 1600 MG, UNK
     Route: 042
     Dates: start: 20080530
  12. PREDNISONE [Suspect]
     Indication: MANTLE CELL LYMPHOMA
     Dosage: 100 MG, UNK
     Route: 048
     Dates: start: 20080530

REACTIONS (2)
  - NEUTROPENIC SEPSIS [None]
  - PNEUMOCYSTIS JIROVECI PNEUMONIA [None]
